FAERS Safety Report 5465575-2 (Version None)
Quarter: 2007Q3

REPORT INFORMATION
  Report Type: 
  Country: None (occurrence: None)
  Receive Date: 20070924
  Receipt Date: 19980618
  Transmission Date: 20080115
  Serious: Yes (Disabling)
  Sender: FDA-Public Use
  Company Number: FR-PFIZER INC-2006121260

PATIENT
  Sex: Male

DRUGS (2)
  1. IRINOTECAN HCL [Suspect]
     Indication: NEUROECTODERMAL NEOPLASM
     Dosage: DAILY DOSE:350MG/M2
     Route: 042
     Dates: start: 19980609, end: 19980609
  2. ANAFRANIL [Concomitant]

REACTIONS (1)
  - CEREBELLAR SYNDROME [None]
